FAERS Safety Report 24066318 (Version 1)
Quarter: 2024Q3

REPORT INFORMATION
  Report Type: Spontaneous
  Country: GR (occurrence: GR)
  Receive Date: 20240709
  Receipt Date: 20240709
  Transmission Date: 20241017
  Serious: Yes (Other)
  Sender: AMGEN
  Company Number: GR-AMGEN-GRCSP2024131446

PATIENT
  Age: 68 Year
  Sex: Female

DRUGS (3)
  1. PROLIA [Suspect]
     Active Substance: DENOSUMAB
     Indication: Osteoporosis postmenopausal
     Dosage: 60 MILLIGRAM, Q6MO
     Route: 065
  2. PROLIA [Suspect]
     Active Substance: DENOSUMAB
     Dosage: 60 MILLIGRAM, Q6MO
     Route: 065
  3. ROMOSOZUMAB [Suspect]
     Active Substance: ROMOSOZUMAB
     Indication: Osteoporosis postmenopausal
     Dosage: 210 MILLIGRAM, QMO
     Route: 065

REACTIONS (2)
  - Thoracic vertebral fracture [Recovering/Resolving]
  - Lumbar vertebral fracture [Recovering/Resolving]
